FAERS Safety Report 5479023-X (Version None)
Quarter: 2007Q4

REPORT INFORMATION
  Report Type: 
  Country: None (occurrence: None)
  Receive Date: 20071006
  Receipt Date: 20070925
  Transmission Date: 20080405
  Serious: Yes (Other)
  Sender: FDA-Public Use
  Company Number: DE-PFIZER INC-2007080853

PATIENT
  Age: 56 Year
  Sex: Female

DRUGS (3)
  1. LYRICA [Suspect]
     Indication: POLYNEUROPATHY
     Dosage: DAILY DOSE:300MG-TEXT:PER DAY
  2. RAMIPRIL [Concomitant]
  3. HALCION [Concomitant]

REACTIONS (6)
  - DIPLOPIA [None]
  - DIZZINESS [None]
  - NAUSEA [None]
  - OEDEMA PERIPHERAL [None]
  - VITREOUS DISORDER [None]
  - WEIGHT INCREASED [None]
